FAERS Safety Report 13211963 (Version 1)
Quarter: 2017Q1

REPORT INFORMATION
  Report Type: Spontaneous
  Country: US (occurrence: US)
  Receive Date: 20170210
  Receipt Date: 20170210
  Transmission Date: 20170428
  Serious: Yes (Hospitalization)
  Sender: FDA-Public Use
  Company Number: None

PATIENT
  Age: 49 Year
  Sex: Female

DRUGS (8)
  1. METHOTREXATE. [Concomitant]
     Active Substance: METHOTREXATE
  2. ONDANSETRON [Concomitant]
     Active Substance: ONDANSETRON
  3. SIMPONI [Suspect]
     Active Substance: GOLIMUMAB
     Indication: RHEUMATOID ARTHRITIS
     Route: 058
     Dates: start: 20160917
  4. IBUPROFEN. [Concomitant]
     Active Substance: IBUPROFEN
  5. FOLIC ACID. [Concomitant]
     Active Substance: FOLIC ACID
  6. CHANTIX [Concomitant]
     Active Substance: VARENICLINE TARTRATE
  7. CALCIUM [Concomitant]
     Active Substance: CALCIUM
  8. VICODIN [Concomitant]
     Active Substance: ACETAMINOPHEN\HYDROCODONE BITARTRATE

REACTIONS (2)
  - Rheumatoid arthritis [None]
  - Pain [None]

NARRATIVE: CASE EVENT DATE: 20170119
